FAERS Safety Report 8530845-8 (Version None)
Quarter: 2012Q3

REPORT INFORMATION
  Report Type: 
  Country: None (occurrence: None)
  Receive Date: 20120710
  Receipt Date: 20120703
  Transmission Date: 20120928
  Serious: Yes (Other)
  Sender: FDA-Public Use
  Company Number: USA/USA/12/0024904

PATIENT
  Age: 57 Year
  Sex: Male

DRUGS (2)
  1. ZOCOR [Suspect]
     Indication: BLOOD CHOLESTEROL
     Dosage: 40 MG, 1 IN 1 D, UNKNOWN
     Dates: end: 20100101
  2. SIMVASTATIN [Suspect]
     Indication: BLOOD CHOLESTEROL

REACTIONS (6)
  - RHABDOMYOLYSIS [None]
  - GENERAL PHYSICAL HEALTH DETERIORATION [None]
  - RENAL IMPAIRMENT [None]
  - CORONARY ARTERY OCCLUSION [None]
  - DRUG INTERACTION [None]
  - TOXICITY TO VARIOUS AGENTS [None]
